FAERS Safety Report 23507338 (Version 2)
Quarter: 2024Q1

REPORT INFORMATION
  Report Type: Spontaneous
  Country: US (occurrence: None)
  Receive Date: 20240209
  Receipt Date: 20240212
  Transmission Date: 20240410
  Serious: Yes (Other)
  Sender: FDA-Public Use
  Company Number: 2024A029127

PATIENT
  Sex: Male

DRUGS (2)
  1. ROSUVASTATIN [Suspect]
     Active Substance: ROSUVASTATIN
     Dosage: 40.0MG UNKNOWN
     Route: 048
  2. TICAGRELOR [Suspect]
     Active Substance: TICAGRELOR
     Route: 048

REACTIONS (12)
  - Cardiac amyloidosis [Unknown]
  - Ventricular hypertrophy [Unknown]
  - Acute myocardial infarction [Unknown]
  - Plasmacytoma [Unknown]
  - Glomerular filtration rate decreased [Unknown]
  - Global longitudinal strain abnormal [Unknown]
  - Hypertension [Unknown]
  - Pain [Unknown]
  - Drug interaction [Unknown]
  - Monoclonal immunoglobulin present [Unknown]
  - Fatigue [Unknown]
  - Troponin abnormal [Unknown]
